FAERS Safety Report 8156926-9 (Version None)
Quarter: 2012Q1

REPORT INFORMATION
  Report Type: 
  Country: None (occurrence: None)
  Receive Date: 20120222
  Receipt Date: 20120221
  Transmission Date: 20120608
  Serious: Yes (Death, Hospitalization)
  Sender: FDA-Public Use
  Company Number: CA-BRISTOL-MYERS SQUIBB COMPANY-16320202

PATIENT
  Age: 69 Year
  Sex: Female

DRUGS (20)
  1. APREPITANT [Concomitant]
     Dates: start: 20111219
  2. CETUXIMAB [Suspect]
     Indication: NON-SMALL CELL LUNG CANCER
     Dosage: 19DEC11-19DEC11,04JAN12-11JAN12;372MG
     Route: 042
     Dates: start: 20111219, end: 20120111
  3. CISPLATIN [Suspect]
     Indication: NON-SMALL CELL LUNG CANCER
     Route: 042
     Dates: start: 20111219
  4. LACTULOSE [Concomitant]
  5. PLAVIX [Concomitant]
  6. LORAZEPAM [Concomitant]
  7. ZOPICLONE [Concomitant]
  8. DIPHENHYDRAMINE HCL [Concomitant]
     Dates: start: 20111219
  9. HYDROMORPH CONTIN [Concomitant]
  10. PRILOSEC [Concomitant]
  11. METOCLOPRAMIDE [Concomitant]
     Dates: start: 20111219
  12. ONDANSETRON [Concomitant]
     Dates: start: 20111219
  13. POTASSIUM CHLORIDE [Concomitant]
     Dates: start: 20111219
  14. MAGNESIUM SULFATE [Concomitant]
     Dates: start: 20111219
  15. SYNTHROID [Concomitant]
  16. FERROUS SULFATE [Concomitant]
  17. HYDROMORPHONE HCL [Concomitant]
  18. DEXAMETHASONE [Concomitant]
     Dates: start: 20111220
  19. MANNITOL [Concomitant]
     Dates: start: 20111219
  20. LIPITOR [Concomitant]

REACTIONS (4)
  - NAUSEA [None]
  - NEOPLASM MALIGNANT [None]
  - NEOPLASM PROGRESSION [None]
  - HYPONATRAEMIA [None]
